FAERS Safety Report 7455641-4 (Version None)
Quarter: 2011Q2

REPORT INFORMATION
  Report Type: 
  Country: None (occurrence: None)
  Receive Date: 20110503
  Receipt Date: 20110425
  Transmission Date: 20111010
  Serious: Yes (Hospitalization)
  Sender: FDA-Public Use
  Company Number: RU-GENZYME-CAMP-1001462

PATIENT
  Sex: Male
  Weight: 95 kg

DRUGS (3)
  1. CAMPATH [Suspect]
     Dosage: 24 MG, QDX3
     Route: 042
     Dates: start: 20050302, end: 20050304
  2. CAMPATH [Suspect]
     Indication: MULTIPLE SCLEROSIS
     Dosage: 24 MG, QDX5
     Route: 042
     Dates: start: 20040203, end: 20040207
  3. CAMPATH [Suspect]
     Dosage: 12 MG, QD
     Route: 042
     Dates: start: 20100119, end: 20100121

REACTIONS (1)
  - TRACHEOBRONCHITIS [None]
